FAERS Safety Report 18348832 (Version 1)
Quarter: 2020Q4

REPORT INFORMATION
  Report Type: Spontaneous
  Country: US (occurrence: US)
  Receive Date: 20201005
  Receipt Date: 20201005
  Transmission Date: 20210114
  Serious: Yes (Hospitalization)
  Sender: FDA-Public Use
  Company Number: None

PATIENT
  Sex: Female

DRUGS (18)
  1. FLUCONAZOLE. [Concomitant]
     Active Substance: FLUCONAZOLE
  2. MIDODRINE [Concomitant]
     Active Substance: MIDODRINE
  3. BISOPROL FUM [Concomitant]
     Active Substance: BISOPROLOL FUMARATE
  4. FUROSEMIDE. [Concomitant]
     Active Substance: FUROSEMIDE
  5. METOPROL TAR [Concomitant]
  6. MIRTAZAPINE. [Concomitant]
     Active Substance: MIRTAZAPINE
  7. POT CHILORIDE ER [Concomitant]
  8. DOXYCYCL HYC [Concomitant]
  9. IPRATROPIUM/SOL ALBUTER [Concomitant]
  10. PANTOPRAZOLE [Concomitant]
     Active Substance: PANTOPRAZOLE
  11. METOLAZONE. [Concomitant]
     Active Substance: METOLAZONE
  12. SPIRONOLACT [Concomitant]
     Active Substance: SPIRONOLACTONE
  13. PROPYLTHIOUR [Concomitant]
  14. AMBRISENTAN 5MG TAB [Suspect]
     Active Substance: AMBRISENTAN
     Indication: PULMONARY ARTERIAL HYPERTENSION
     Dosage: ?          OTHER DOSE:1 TAB;?
     Route: 048
     Dates: start: 20131029
  15. AMOX/K CLAV [Concomitant]
     Active Substance: AMOXICILLIN\CLAVULANATE POTASSIUM
  16. BUMETANIDE. [Concomitant]
     Active Substance: BUMETANIDE
  17. PERCOCET [Concomitant]
     Active Substance: ACETAMINOPHEN\OXYCODONE HYDROCHLORIDE
  18. SMZ/TMP DS [Concomitant]
     Active Substance: SULFAMETHOXAZOLE\TRIMETHOPRIM

REACTIONS (2)
  - Biopsy lung [None]
  - Fluid retention [None]
